FAERS Safety Report 21246001 (Version 1)
Quarter: 2022Q3

REPORT INFORMATION
  Report Type: Spontaneous
  Country: FR (occurrence: FR)
  Receive Date: 20220824
  Receipt Date: 20220824
  Transmission Date: 20221027
  Serious: Yes (Hospitalization, Other)
  Sender: FDA-Public Use
  Company Number: None

PATIENT
  Age: 87 Year
  Sex: Male

DRUGS (2)
  1. KARDEGIC [Suspect]
     Active Substance: ASPIRIN DL-LYSINE
     Indication: Product used for unknown indication
     Dosage: 1 DF, QD,1/DAY THEORETICALLY, LONG-TERM
     Route: 048
     Dates: end: 20220510
  2. PLAVIX [Suspect]
     Active Substance: CLOPIDOGREL BISULFATE
     Indication: Product used for unknown indication
     Dosage: 1 DF, QD,IN THE LONG TERM
     Route: 048
     Dates: end: 20220428

REACTIONS (2)
  - Oesophagitis ulcerative [Recovered/Resolved]
  - Anaemia [Recovered/Resolved]
